FAERS Safety Report 4453789-X (Version None)
Quarter: 2004Q3

REPORT INFORMATION
  Report Type: 
  Country: None (occurrence: None)
  Receive Date: 20040920
  Receipt Date: 20040723
  Transmission Date: 20050211
  Serious: Yes (Other)
  Sender: FDA-Public Use
  Company Number: PHEH2004US07985

PATIENT
  Age: 22 Year
  Sex: Female
  Weight: 62 kg

DRUGS (3)
  1. ZELNORM [Suspect]
     Indication: IRRITABLE BOWEL SYNDROME
     Dosage: 6 MG, BID
     Route: 048
     Dates: start: 20030601, end: 20040601
  2. CLIDINIUM [Concomitant]
  3. ALLEGRA-D [Concomitant]

REACTIONS (5)
  - ABDOMINAL PAIN [None]
  - ANTINUCLEAR ANTIBODY POSITIVE [None]
  - CONNECTIVE TISSUE DISORDER [None]
  - DIARRHOEA [None]
  - FOOD POISONING [None]
